FAERS Safety Report 8557384-2 (Version None)
Quarter: 2012Q3

REPORT INFORMATION
  Report Type: 
  Country: None (occurrence: None)
  Receive Date: 20120801
  Receipt Date: 20120719
  Transmission Date: 20120928
  Serious: Yes (Hospitalization)
  Sender: FDA-Public Use
  Company Number: JP-UCBSA-062273

PATIENT
  Age: 80 Year
  Sex: Male

DRUGS (13)
  1. NORVASC [Concomitant]
     Route: 048
  2. ALLOPURINOL [Concomitant]
     Route: 048
  3. CANDESARTAN CILEXETIL AND HYDROCHLOROTHIAZIDE [Concomitant]
     Route: 048
  4. XYZAL [Suspect]
     Indication: PRURITUS
     Route: 048
     Dates: start: 20120420, end: 20120713
  5. PLAVIX [Concomitant]
     Route: 048
  6. ENALAPRIL MALEATE [Concomitant]
     Route: 048
  7. EURAX [Concomitant]
     Route: 061
  8. VICTOZA [Concomitant]
     Route: 058
  9. PLETAL [Concomitant]
     Route: 048
  10. ZOLPIDEM [Concomitant]
     Route: 048
  11. LENDORMIN [Concomitant]
     Route: 048
  12. FUROSEMIDE [Concomitant]
     Route: 048
  13. FULMETA [Concomitant]
     Dosage: LOTION ONE TIME DAILY
     Route: 061

REACTIONS (2)
  - PLATELET COUNT DECREASED [None]
  - ASTHENIA [None]
